FAERS Safety Report 6201924-5 (Version None)
Quarter: 2009Q2

REPORT INFORMATION
  Report Type: 
  Country: None (occurrence: None)
  Receive Date: 20090526
  Receipt Date: 20090518
  Transmission Date: 20091009
  Serious: Yes (Hospitalization, Other)
  Sender: FDA-Public Use
  Company Number: PHEH2007US09429

PATIENT
  Sex: Male
  Weight: 94.331 kg

DRUGS (1)
  1. ZOMETA [Suspect]
     Dosage: UNK
     Dates: end: 20051201

REACTIONS (17)
  - ALANINE AMINOTRANSFERASE INCREASED [None]
  - ANXIETY [None]
  - BIOPSY LIVER [None]
  - BLOOD ALKALINE PHOSPHATASE INCREASED [None]
  - BLOOD CHOLESTEROL INCREASED [None]
  - BONE DISORDER [None]
  - DEFORMITY [None]
  - EMOTIONAL DISTRESS [None]
  - ENDODONTIC PROCEDURE [None]
  - HYPOPHAGIA [None]
  - METASTASES TO BONE [None]
  - METASTASES TO LIVER [None]
  - MOUTH HAEMORRHAGE [None]
  - OSTEONECROSIS [None]
  - PAIN [None]
  - RENAL CANCER METASTATIC [None]
  - TOOTH EXTRACTION [None]
